FAERS Safety Report 12705645 (Version 1)
Quarter: 2016Q3

REPORT INFORMATION
  Report Type: Spontaneous
  Country: US (occurrence: US)
  Receive Date: 20160901
  Receipt Date: 20160901
  Transmission Date: 20161109
  Serious: No
  Sender: FDA-Public Use
  Company Number: US-009507513-0510USA07270

PATIENT
  Sex: Male

DRUGS (11)
  1. MK-9355 [Concomitant]
     Active Substance: UNSPECIFIED INGREDIENT
  2. ASPIRIN. [Concomitant]
     Active Substance: ASPIRIN
  3. TOPROL XL [Concomitant]
     Active Substance: METOPROLOL SUCCINATE
  4. LIPITOR [Concomitant]
     Active Substance: ATORVASTATIN CALCIUM
  5. HYZAAR [Suspect]
     Active Substance: HYDROCHLOROTHIAZIDE\LOSARTAN POTASSIUM
     Indication: HYPERTENSION
     Dosage: 100-25
     Route: 048
     Dates: start: 2003, end: 200503
  6. PYRIDOXINE [Concomitant]
     Active Substance: PYRIDOXINE
  7. HYZAAR [Suspect]
     Active Substance: HYDROCHLOROTHIAZIDE\LOSARTAN POTASSIUM
     Dosage: 50-12.5
     Route: 048
     Dates: start: 200503, end: 20051012
  8. VERELAN [Concomitant]
     Active Substance: VERAPAMIL HYDROCHLORIDE
  9. TYLENOL [Concomitant]
     Active Substance: ACETAMINOPHEN
  10. TRICOR [Concomitant]
     Active Substance: FENOFIBRATE
  11. NEXIUM [Concomitant]
     Active Substance: ESOMEPRAZOLE MAGNESIUM

REACTIONS (1)
  - Blood creatinine increased [Unknown]
